FAERS Safety Report 9174429 (Version 1)
Quarter: 2013Q1

REPORT INFORMATION
  Report Type: Spontaneous
  Country: US (occurrence: US)
  Receive Date: 20130320
  Receipt Date: 20130320
  Transmission Date: 20140127
  Serious: No
  Sender: FDA-Public Use
  Company Number: US-MYLANLABS-2012S1005688

PATIENT
  Age: 67 Year
  Sex: Female

DRUGS (4)
  1. ESTRADIOL TRANSDERMAL SYSTEM, USP [Suspect]
     Dosage: CHANGED QW
     Route: 062
     Dates: start: 201203
  2. HCTZ [Concomitant]
     Route: 048
  3. POTASSIUM [Concomitant]
     Route: 048
  4. MULTIVITAMIN [Concomitant]
     Route: 048

REACTIONS (3)
  - Headache [Not Recovered/Not Resolved]
  - Application site pruritus [Not Recovered/Not Resolved]
  - Application site erythema [Not Recovered/Not Resolved]
